FAERS Safety Report 4288912-3 (Version None)
Quarter: 2004Q1

REPORT INFORMATION
  Report Type: 
  Country: None (occurrence: None)
  Receive Date: 20040203
  Receipt Date: 20031114
  Transmission Date: 20041129
  Serious: Yes (Other)
  Sender: FDA-Public Use
  Company Number: 200328427BWH

PATIENT
  Sex: 0

DRUGS (1)
  1. AVELOX [Suspect]

REACTIONS (1)
  - LEUKOPENIA [None]
